FAERS Safety Report 12654334 (Version 1)
Quarter: 2016Q3

REPORT INFORMATION
  Report Type: Report from Study
  Country: MX (occurrence: MX)
  Receive Date: 20160816
  Receipt Date: 20160816
  Transmission Date: 20161109
  Serious: Yes (Other)
  Sender: FDA-Public Use
  Company Number: PHHY2016MX110655

PATIENT
  Sex: Male

DRUGS (1)
  1. EXFORGE [Suspect]
     Active Substance: AMLODIPINE BESYLATE\VALSARTAN
     Indication: HYPERTENSION
     Dosage: 2 DF (AMLODIPINE 5 MG/ VALSARTAN 160 MG), QD (APPROXIMATELY 15 YEARS AGO)
     Route: 065

REACTIONS (2)
  - Asphyxia [Unknown]
  - Off label use [Not Recovered/Not Resolved]
